FAERS Safety Report 12584185 (Version 1)
Quarter: 2016Q3

REPORT INFORMATION
  Report Type: Spontaneous
  Country: US (occurrence: US)
  Receive Date: 20160722
  Receipt Date: 20160722
  Transmission Date: 20161109
  Serious: No
  Sender: FDA-Public Use
  Company Number: US-ABBVIE-08P-163-0466158-00

PATIENT
  Sex: Female

DRUGS (1)
  1. SYNTHROID [Suspect]
     Active Substance: LEVOTHYROXINE SODIUM
     Indication: HORMONE REPLACEMENT THERAPY
     Route: 048
     Dates: start: 1993

REACTIONS (8)
  - Feeling abnormal [Unknown]
  - Weight increased [Unknown]
  - Product taste abnormal [Not Recovered/Not Resolved]
  - Rosacea [Unknown]
  - Nail disorder [Unknown]
  - Skin disorder [Unknown]
  - Hair texture abnormal [Unknown]
  - Calcium deficiency [Not Recovered/Not Resolved]
